FAERS Safety Report 13600961 (Version 4)
Quarter: 2017Q3

REPORT INFORMATION
  Report Type: Spontaneous
  Country: AU (occurrence: AU)
  Receive Date: 20170601
  Receipt Date: 20170719
  Transmission Date: 20171127
  Serious: Yes (Other)
  Sender: FDA-Public Use
  Company Number: AU-009507513-1705AUS012908

PATIENT
  Age: 31 Year
  Sex: Female
  Weight: 99 kg

DRUGS (4)
  1. IMPLANON [Suspect]
     Active Substance: ETONOGESTREL
     Indication: CONTRACEPTION
     Dosage: 1 DF, ONE IN 3 YEARS
     Route: 058
     Dates: start: 20170510, end: 20170518
  2. SEROQUEL [Concomitant]
     Active Substance: QUETIAPINE FUMARATE
     Indication: ANXIETY
     Dosage: 300 MG, UNK
     Route: 048
  3. IMPLANON [Suspect]
     Active Substance: ETONOGESTREL
     Dosage: ONE IN 3 YEARS
     Route: 058
     Dates: start: 20170531
  4. EFEXOR [Concomitant]
     Active Substance: VENLAFAXINE HYDROCHLORIDE
     Indication: ANXIETY
     Dosage: 225 MG, QD
     Route: 048

REACTIONS (4)
  - Implant site pain [Recovering/Resolving]
  - Product contamination [Unknown]
  - Cellulitis staphylococcal [Recovered/Resolved]
  - Implant site erythema [Recovering/Resolving]

NARRATIVE: CASE EVENT DATE: 20170515
